FAERS Safety Report 6753300-4 (Version None)
Quarter: 2010Q2

REPORT INFORMATION
  Report Type: 
  Country: None (occurrence: None)
  Receive Date: 20100603
  Receipt Date: 20100520
  Transmission Date: 20101027
  Serious: Yes (Hospitalization)
  Sender: FDA-Public Use
  Company Number: ES-ELI_LILLY_AND_COMPANY-ES201005005941

PATIENT
  Sex: Female
  Weight: 54 kg

DRUGS (5)
  1. FORTEO [Suspect]
     Indication: OSTEOPOROSIS
     Dosage: 20 UG, DAILY (1/D)
     Dates: start: 20090601
  2. FRAXIPARINA [Concomitant]
     Indication: ANTICOAGULANT THERAPY
     Dosage: 7500 U, UNKNOWN
     Route: 058
  3. SEGURIL [Concomitant]
     Indication: DIURETIC THERAPY
     Dosage: 5 MEQ, DAILY (1/D)
     Route: 048
  4. EMCONCOR [Concomitant]
     Indication: CARDIAC DISORDER
     Dosage: UNK, DAILY (1/D)
     Route: 048
  5. PANTOPRAZOL [Concomitant]
     Indication: GASTRIC DISORDER
     Dosage: 20 MG, DAILY (1/D)
     Route: 048

REACTIONS (1)
  - CARDIAC PACEMAKER INSERTION [None]
